FAERS Safety Report 17164224 (Version 10)
Quarter: 2020Q3

REPORT INFORMATION
  Report Type: Spontaneous
  Country: US (occurrence: US)
  Receive Date: 20191217
  Receipt Date: 20200902
  Transmission Date: 20201102
  Serious: Yes (Other)
  Sender: FDA-Public Use
  Company Number: US-PFIZER INC-2019541251

PATIENT
  Age: 62 Year
  Sex: Female

DRUGS (4)
  1. HYDROCODONE [Concomitant]
     Active Substance: HYDROCODONE
     Dosage: UNK
  2. ACETAMINOPHEN. [Concomitant]
     Active Substance: ACETAMINOPHEN
     Dosage: UNK
  3. LYRICA [Suspect]
     Active Substance: PREGABALIN
     Dosage: 4 DF, DAILY
  4. LYRICA [Suspect]
     Active Substance: PREGABALIN
     Dosage: 2 DF, DAILY [I AM ONLY TAKING TWO A DAY]

REACTIONS (13)
  - Fall [Unknown]
  - Head injury [Unknown]
  - Illness [Unknown]
  - Drug ineffective [Unknown]
  - Nasopharyngitis [Unknown]
  - Drug dependence [Unknown]
  - Drug hypersensitivity [Unknown]
  - Depression [Unknown]
  - Pain [Unknown]
  - Sinusitis [Unknown]
  - Intentional product misuse [Unknown]
  - Feeling of body temperature change [Unknown]
  - Feeling abnormal [Unknown]
